FAERS Safety Report 7968207-4 (Version None)
Quarter: 2011Q4

REPORT INFORMATION
  Report Type: 
  Country: None (occurrence: None)
  Receive Date: 20111121
  Receipt Date: 20110817
  Transmission Date: 20120403
  Serious: No
  Sender: FDA-Public Use
  Company Number: 1000022945

PATIENT
  Sex: Female

DRUGS (1)
  1. VIIBRYD [Suspect]
     Dates: start: 20110101

REACTIONS (3)
  - VOMITING [None]
  - CRYING [None]
  - ABNORMAL DREAMS [None]
